FAERS Safety Report 5941292-7 (Version None)
Quarter: 2008Q4

REPORT INFORMATION
  Report Type: 
  Country: None (occurrence: None)
  Receive Date: 20081103
  Receipt Date: 20081103
  Transmission Date: 20090506
  Serious: No
  Sender: FDA-Public Use
  Company Number: None

PATIENT
  Age: 51 Year
  Sex: Female
  Weight: 77.1115 kg

DRUGS (1)
  1. CIPROFLOXACIN [Suspect]
     Indication: INFECTION PROPHYLAXIS
     Dosage: 500 MILLIGRAMS 2 DAILY PO
     Route: 048
     Dates: start: 20080129, end: 20080212

REACTIONS (4)
  - HYPERTENSION [None]
  - KIDNEY ENLARGEMENT [None]
  - RENAL FAILURE [None]
  - TINNITUS [None]
